APPROVED DRUG PRODUCT: IFOSFAMIDE
Active Ingredient: IFOSFAMIDE
Strength: 3GM/60ML (50MG/ML)
Dosage Form/Route: INJECTABLE;INJECTION
Application: A076657 | Product #002 | TE Code: AP
Applicant: MEITHEAL PHARMACEUTICALS INC
Approved: Apr 4, 2007 | RLD: No | RS: Yes | Type: RX